FAERS Safety Report 15830740 (Version 1)
Quarter: 2019Q1

REPORT INFORMATION
  Report Type: Spontaneous
  Country: US (occurrence: US)
  Receive Date: 20190116
  Receipt Date: 20190116
  Transmission Date: 20190417
  Serious: No
  Sender: FDA-Public Use
  Company Number: US-ACCORD-072777

PATIENT
  Sex: Female

DRUGS (1)
  1. SPIRONOLACTONE ACCORD [Suspect]
     Active Substance: SPIRONOLACTONE
     Indication: BLOOD PRESSURE MEASUREMENT
     Dosage: STRENGTH: 25 MG?DOSE: 25 MG ONCE A DAY
     Route: 048

REACTIONS (2)
  - Nausea [Unknown]
  - Product odour abnormal [Unknown]
